FAERS Safety Report 8168342-4 (Version None)
Quarter: 2012Q1

REPORT INFORMATION
  Report Type: 
  Country: None (occurrence: None)
  Receive Date: 20120227
  Receipt Date: 20120222
  Transmission Date: 20120608
  Serious: Yes (Hospitalization, Other)
  Sender: FDA-Public Use
  Company Number: US-MERCK-1103USA03944

PATIENT
  Age: 61 Year
  Sex: Female
  Weight: 48 kg

DRUGS (11)
  1. FOSAMAX [Suspect]
     Indication: OSTEOPOROSIS
     Route: 048
     Dates: start: 20010101, end: 20070101
  2. BONIVA [Suspect]
     Indication: OSTEOPOROSIS PROPHYLAXIS
     Route: 048
     Dates: start: 20070301, end: 20100901
  3. MULTI-VITAMINS [Concomitant]
     Route: 065
  4. CALCIUM (UNSPECIFIED) [Concomitant]
     Route: 065
  5. ACETAMINOPHEN [Concomitant]
     Route: 065
     Dates: start: 20050501
  6. ALLERGENIC EXTRACT [Concomitant]
     Indication: SEASONAL ALLERGY
     Route: 051
  7. FOSAMAX [Suspect]
     Indication: OSTEOPOROSIS PROPHYLAXIS
     Route: 048
     Dates: start: 20010101, end: 20070101
  8. BONIVA [Suspect]
     Indication: OSTEOPOROSIS
     Route: 048
     Dates: start: 20070301, end: 20100901
  9. IBUPROFEN [Concomitant]
     Route: 065
     Dates: start: 20050501
  10. MIACALCIN [Concomitant]
     Route: 065
  11. AMOXICILLIN [Concomitant]
     Indication: PREMEDICATION
     Route: 065
     Dates: start: 19920701

REACTIONS (51)
  - DRUG HYPERSENSITIVITY [None]
  - INTERVERTEBRAL DISC DISORDER [None]
  - HYPERTRIGLYCERIDAEMIA [None]
  - VIRAL UPPER RESPIRATORY TRACT INFECTION [None]
  - VERTEBRAL FORAMINAL STENOSIS [None]
  - BREAST ENLARGEMENT [None]
  - SCIATICA [None]
  - PLANTAR FASCIITIS [None]
  - BREAST PAIN [None]
  - MUSCLE SPASMS [None]
  - GASTROINTESTINAL DISORDER [None]
  - INTERVERTEBRAL DISC PROTRUSION [None]
  - ANXIETY [None]
  - DYSPHONIA [None]
  - VISION BLURRED [None]
  - BURSITIS [None]
  - LOW TURNOVER OSTEOPATHY [None]
  - LONG THORACIC NERVE PALSY [None]
  - DENTAL CARIES [None]
  - DYSPEPSIA [None]
  - ELECTROCARDIOGRAM ABNORMAL [None]
  - HAEMATOCRIT DECREASED [None]
  - GASTROOESOPHAGEAL REFLUX DISEASE [None]
  - HYPERCHOLESTEROLAEMIA [None]
  - VULVOVAGINAL DRYNESS [None]
  - STRESS [None]
  - SPINAL COLUMN STENOSIS [None]
  - LUMBAR RADICULOPATHY [None]
  - INTERVERTEBRAL DISC DEGENERATION [None]
  - FEMORAL NECK FRACTURE [None]
  - JOINT EFFUSION [None]
  - RENAL CYST [None]
  - SKIN LESION [None]
  - MUSCLE STRAIN [None]
  - FIBROCYSTIC BREAST DISEASE [None]
  - DIARRHOEA [None]
  - FEMUR FRACTURE [None]
  - SKIN HYPERPIGMENTATION [None]
  - DEAFNESS [None]
  - SINUSITIS [None]
  - RESTLESS LEGS SYNDROME [None]
  - SKIN DISORDER [None]
  - ARTHRALGIA [None]
  - OVARIAN CYST [None]
  - TOOTH DISORDER [None]
  - WEIGHT INCREASED [None]
  - SPONDYLOLISTHESIS [None]
  - NOCTURIA [None]
  - THYROID DISORDER [None]
  - UTERINE LEIOMYOMA [None]
  - FOOT DEFORMITY [None]
